FAERS Safety Report 21070169 (Version 9)
Quarter: 2024Q1

REPORT INFORMATION
  Report Type: Report from Study
  Country: CA (occurrence: CA)
  Receive Date: 20220712
  Receipt Date: 20240228
  Transmission Date: 20240410
  Serious: Yes (Hospitalization, Other)
  Sender: FDA-Public Use
  Company Number: CA-VER-202200369

PATIENT
  Age: 75 Year
  Sex: Male

DRUGS (5)
  1. TRIPTORELIN PAMOATE [Suspect]
     Active Substance: TRIPTORELIN PAMOATE
     Indication: Prostate cancer
     Dosage: DRUG START DATE:29-JUL-2022
     Route: 030
     Dates: start: 20220629, end: 20220629
  2. TRIPTORELIN PAMOATE [Suspect]
     Active Substance: TRIPTORELIN PAMOATE
     Indication: Prostate cancer
     Route: 030
     Dates: start: 20231106, end: 20231106
  3. TRIPTORELIN PAMOATE [Suspect]
     Active Substance: TRIPTORELIN PAMOATE
     Indication: Prostate cancer
     Dosage: 22.5 MILLIGRAM, ONCE / 6 MONTHS (22.5 MG,6 M)
     Route: 030
     Dates: start: 20240208, end: 20240208
  4. TRIPTORELIN PAMOATE [Suspect]
     Active Substance: TRIPTORELIN PAMOATE
     Indication: Prostate cancer
     Dosage: 2)??11.25 MILLIGRAM, ONCE / 3 MONTHS, STRENGTH:22.5 MG (11.25 MG,3 M)-29-JUNE-2022
     Route: 030
     Dates: start: 20210611, end: 20210611
  5. CEPHALEXIN [Concomitant]
     Active Substance: CEPHALEXIN
     Indication: Product used for unknown indication
     Route: 065

REACTIONS (8)
  - Dizziness [Not Recovered/Not Resolved]
  - Infection [Recovered/Resolved with Sequelae]
  - Head injury [Not Recovered/Not Resolved]
  - Injection site pain [Recovered/Resolved with Sequelae]
  - Deafness unilateral [Not Recovered/Not Resolved]
  - Staphylococcal infection [Recovered/Resolved with Sequelae]
  - Inappropriate schedule of product administration [Recovered/Resolved with Sequelae]
  - Bone operation [Recovered/Resolved with Sequelae]

NARRATIVE: CASE EVENT DATE: 20211121
